FAERS Safety Report 17286180 (Version 1)
Quarter: 2020Q1

REPORT INFORMATION
  Report Type: Spontaneous
  Country: IT (occurrence: IT)
  Receive Date: 20200118
  Receipt Date: 20200118
  Transmission Date: 20200409
  Serious: Yes (Hospitalization, Other)
  Sender: FDA-Public Use
  Company Number: IT-ACCORD-169919

PATIENT
  Age: 44 Year
  Sex: Female

DRUGS (1)
  1. TACROLIMUS. [Suspect]
     Active Substance: TACROLIMUS
     Indication: CHRONIC GRAFT VERSUS HOST DISEASE
     Dates: start: 201702

REACTIONS (5)
  - Human herpesvirus 6 infection [Recovered/Resolved]
  - Progressive multifocal leukoencephalopathy [Recovered/Resolved]
  - Hemianopia homonymous [Unknown]
  - JC virus infection [Unknown]
  - Disease recurrence [Recovered/Resolved]
